FAERS Safety Report 4731650-0 (Version None)
Quarter: 2005Q3

REPORT INFORMATION
  Report Type: 
  Country: None (occurrence: None)
  Receive Date: 20050802
  Receipt Date: 20050726
  Transmission Date: 20060218
  Serious: Yes (Other)
  Sender: FDA-Public Use
  Company Number: US-JNJFOC-20050705960

PATIENT
  Age: 44 Year
  Sex: Female

DRUGS (6)
  1. LEVAQUIN [Suspect]
     Indication: BRONCHITIS
     Route: 048
  2. INSULIN [Concomitant]
  3. HUMALOG [Concomitant]
     Route: 058
  4. ASPIRIN [Concomitant]
     Indication: PROPHYLAXIS
  5. PROZAC [Concomitant]
     Indication: DEPRESSION
  6. LENTE INSULIN [Concomitant]

REACTIONS (1)
  - DERMATOMYOSITIS [None]
